FAERS Safety Report 8326489-3 (Version None)
Quarter: 2012Q2

REPORT INFORMATION
  Report Type: 
  Country: None (occurrence: None)
  Receive Date: 20120501
  Receipt Date: 20090724
  Transmission Date: 20120825
  Serious: No
  Sender: FDA-Public Use
  Company Number: US-TEVA-2009008897

PATIENT
  Sex: Female
  Weight: 65.83 kg

DRUGS (5)
  1. VITAMIN B-12 [Suspect]
     Indication: PERNICIOUS ANAEMIA
  2. REMERON [Concomitant]
     Route: 048
  3. ATENOLOL [Concomitant]
     Route: 048
  4. NUVIGIL [Suspect]
     Indication: SLEEP APNOEA SYNDROME
     Dosage: 75 MILLIGRAM;
     Route: 048
     Dates: start: 20090717, end: 20090718
  5. KLONOPIN [Concomitant]
     Indication: ANXIETY
     Dates: start: 20090101

REACTIONS (8)
  - MIGRAINE [None]
  - DIZZINESS [None]
  - ARTHRALGIA [None]
  - INSOMNIA [None]
  - ABDOMINAL DISCOMFORT [None]
  - DIARRHOEA [None]
  - INTENTIONAL DRUG MISUSE [None]
  - PSYCHOMOTOR HYPERACTIVITY [None]
